FAERS Safety Report 8040837-3 (Version None)
Quarter: 2012Q1

REPORT INFORMATION
  Report Type: 
  Country: None (occurrence: None)
  Receive Date: 20120112
  Receipt Date: 20120105
  Transmission Date: 20120608
  Serious: Yes (Hospitalization)
  Sender: FDA-Public Use
  Company Number: US-BIOGENIDEC-2011BI023744

PATIENT
  Age: 57 Year
  Sex: Male

DRUGS (2)
  1. TYSABRI [Suspect]
     Indication: MULTIPLE SCLEROSIS
     Route: 042
     Dates: start: 20101011
  2. AVONEX [Concomitant]
     Indication: MULTIPLE SCLEROSIS
     Route: 030
     Dates: start: 19961001

REACTIONS (9)
  - LOWER LIMB FRACTURE [None]
  - FALL [None]
  - PROCEDURAL PAIN [None]
  - MULTIPLE SCLEROSIS [None]
  - WEIGHT INCREASED [None]
  - GAIT DISTURBANCE [None]
  - VASCULAR ACCESS COMPLICATION [None]
  - ANXIETY [None]
  - GENERAL SYMPTOM [None]
